FAERS Safety Report 5072895-2 (Version None)
Quarter: 2006Q3

REPORT INFORMATION
  Report Type: 
  Country: None (occurrence: None)
  Receive Date: 20060807
  Receipt Date: 20060726
  Transmission Date: 20061208
  Serious: Yes (Hospitalization)
  Sender: FDA-Public Use
  Company Number: FR-BOEHRINGER INGELHEIM PHARMACEUTICALS, INC.-2006-FF-00656FF

PATIENT
  Sex: Male
  Weight: 81 kg

DRUGS (1)
  1. MICARDIS HCT [Suspect]
     Indication: HYPERTENSION
     Dosage: TELMISARTAN/HCTZ 80/25 MG
     Route: 048
     Dates: start: 20060119, end: 20060314

REACTIONS (1)
  - ATRIAL FLUTTER [None]
